FAERS Safety Report 7178946-3 (Version None)
Quarter: 2010Q4

REPORT INFORMATION
  Report Type: 
  Country: None (occurrence: None)
  Receive Date: 20101221
  Receipt Date: 20101213
  Transmission Date: 20110411
  Serious: Yes (Other)
  Sender: FDA-Public Use
  Company Number: CN-JNJFOC-20101201346

PATIENT
  Sex: Female
  Weight: 10 kg

DRUGS (2)
  1. CHILDREN'S MOTRIN [Suspect]
     Indication: PYREXIA
     Dosage: 150 MG IN THE MORNING THEN 50 MG IN THE AFTERNOON.
  2. CHILDREN'S MOTRIN [Suspect]

REACTIONS (3)
  - BLOOD CREATINE PHOSPHOKINASE MB INCREASED [None]
  - HEART INJURY [None]
  - INCORRECT DOSE ADMINISTERED [None]
